FAERS Safety Report 7169662-2 (Version None)
Quarter: 2010Q4

REPORT INFORMATION
  Report Type: 
  Country: None (occurrence: None)
  Receive Date: 20101217
  Receipt Date: 20101207
  Transmission Date: 20110411
  Serious: Yes (Other)
  Sender: FDA-Public Use
  Company Number: FR-JNJFOC-20101205398

PATIENT

DRUGS (3)
  1. TRABECTEDIN [Suspect]
     Indication: SARCOMA
     Dosage: CONTINUOUS INFUSION OVER 24 HOURS
     Route: 042
  2. TRABECTEDIN [Suspect]
     Dosage: 1.3-1.5 MG/M2
     Route: 042
  3. DOXORUBICIN HCL [Suspect]
     Indication: SARCOMA
     Route: 042

REACTIONS (1)
  - HEPATIC FUNCTION ABNORMAL [None]
